FAERS Safety Report 9227978 (Version 1)
Quarter: 2013Q2

REPORT INFORMATION
  Report Type: Spontaneous
  Country: US (occurrence: US)
  Receive Date: 20130412
  Receipt Date: 20130412
  Transmission Date: 20140414
  Serious: Yes (Hospitalization)
  Sender: FDA-Public Use
  Company Number: US-TARO-2013P1004438

PATIENT
  Age: 74 Year
  Sex: Female
  Weight: 47.7 kg

DRUGS (1)
  1. WARFARIN SODIUM TABLETS USP 5MG [Suspect]
     Route: 048

REACTIONS (4)
  - International normalised ratio increased [Unknown]
  - Asthenia [Unknown]
  - Upper respiratory tract infection [Recovered/Resolved]
  - Product quality issue [None]
